FAERS Safety Report 9126601 (Version 1)
Quarter: 2013Q1

REPORT INFORMATION
  Report Type: Spontaneous
  Country: GB (occurrence: GB)
  Receive Date: 20130117
  Receipt Date: 20130117
  Transmission Date: 20140127
  Serious: Yes (Other)
  Sender: FDA-Public Use
  Company Number: GB-PFIZER INC-2013019312

PATIENT
  Age: 20 Year
  Sex: Female
  Weight: 53.52 kg

DRUGS (1)
  1. PREGABALIN [Suspect]
     Indication: FIBROMYALGIA
     Dosage: 600 MG, UNK
     Route: 048
     Dates: start: 20120610, end: 20130105

REACTIONS (1)
  - Acne [Recovered/Resolved]
